FAERS Safety Report 10077168 (Version 2)
Quarter: 2014Q2

REPORT INFORMATION
  Report Type: Spontaneous
  Country: US (occurrence: US)
  Receive Date: 20140414
  Receipt Date: 20140414
  Transmission Date: 20141212
  Serious: Yes (Other)
  Sender: FDA-Public Use
  Company Number: PHHY2014US041900

PATIENT
  Sex: Female

DRUGS (11)
  1. LIORESAL INTRATECAL [Suspect]
     Indication: MUSCLE SPASTICITY
     Dosage: 138.17 UG/DAY
     Route: 037
     Dates: start: 19990327
  2. NITROFURANTOIN [Suspect]
     Dosage: UNK UKN, UNK
  3. OMEPRAZOLE [Suspect]
     Dosage: UNK UKN, UNK
  4. SIMVASTATIN [Suspect]
     Dosage: UNK UKN, UNK
  5. KLOR-CON [Suspect]
     Dosage: UNK UKN, UNK
  6. LASIX [Suspect]
     Dosage: UNK UKN, UNK
  7. TOPROL XL [Suspect]
     Dosage: UNK UKN, UNK
  8. SYNTHROID [Suspect]
     Dosage: UNK UKN, UNK
  9. COMBIPATCH [Suspect]
     Dosage: UNK UKN, UNK
  10. FOSAMAX [Suspect]
     Dosage: UNK UKN, UNK
  11. LAMICTAL [Suspect]
     Dosage: UNK UKN, UNK

REACTIONS (5)
  - Infection [Recovered/Resolved]
  - Hemiparesis [Recovered/Resolved]
  - Tremor [Recovered/Resolved]
  - Clonus [Recovered/Resolved]
  - Muscle spasticity [Recovered/Resolved]
